FAERS Safety Report 11157635 (Version 1)
Quarter: 2015Q2

REPORT INFORMATION
  Report Type: Spontaneous
  Country: US (occurrence: None)
  Receive Date: 20150601
  Receipt Date: 20150601
  Transmission Date: 20150821
  Serious: Yes (Disabling)
  Sender: FDA-Public Use
  Company Number: BTG00250

PATIENT
  Age: 55 Year
  Sex: Female

DRUGS (4)
  1. VORAXAZE [Suspect]
     Active Substance: GLUCARPIDASE
     Indication: TOXICITY TO VARIOUS AGENTS
  2. METHOTREXATE (METHOTREXATE SODIUM) [Suspect]
     Active Substance: METHOTREXATE SODIUM
     Indication: ACUTE LYMPHOCYTIC LEUKAEMIA
  3. CYTARABINE HYDROCHLORIDE [Concomitant]
     Active Substance: CYTARABINE HYDROCHLORIDE
  4. LEUCOVORIN (CALCIUM FOLINATE) [Concomitant]
     Active Substance: LEUCOVORIN

REACTIONS (5)
  - Cerebral haemorrhage [None]
  - Dysarthria [None]
  - Ataxia [None]
  - Neurotoxicity [None]
  - Mental status changes [None]
